FAERS Safety Report 9269736 (Version 1)
Quarter: 2013Q2

REPORT INFORMATION
  Report Type: Spontaneous
  Country: GB (occurrence: GB)
  Receive Date: 20130503
  Receipt Date: 20130503
  Transmission Date: 20140414
  Serious: Yes (Life-Threatening, Hospitalization)
  Sender: FDA-Public Use
  Company Number: GB-BRISTOL-MYERS SQUIBB COMPANY-18821116

PATIENT
  Age: 65 Year
  Sex: Male
  Weight: 88 kg

DRUGS (12)
  1. BYDUREON [Suspect]
     Indication: TYPE 2 DIABETES MELLITUS
     Route: 058
     Dates: start: 20110822, end: 20130411
  2. METFORMIN HCL [Suspect]
     Dosage: MODIFIED RELEASE FILM COATED TABLET.
  3. ASPIRIN [Concomitant]
     Dosage: GASTRO-RESISTANT COATED TABLET
  4. AMLODIPINE [Concomitant]
     Dosage: TABS
  5. ALLOPURINOL [Concomitant]
     Dosage: TABS
  6. ATORVASTATIN [Concomitant]
     Dosage: TABS
  7. CO-CODAMOL [Concomitant]
     Dosage: 1DF =30MG/500MG
  8. COLECALCIFEROL [Concomitant]
     Dosage: COLECALCIFEROL 400UNIT / CALCIUM CARBONATE 1.5G CHEWABLE TABLETS?CHEWABLE TABLET
  9. FUROSEMIDE [Concomitant]
     Dosage: TABS
  10. MOXONIDINE [Concomitant]
     Dosage: TABS
  11. TELMISARTAN [Concomitant]
     Dosage: TABS
  12. CALCIUM CARBONATE [Concomitant]
     Dosage: COLECALCIFEROL 400UNIT / CALCIUM CARBONATE 1.5G CHEWABLE TABLETS?CHEWABLE TABLET

REACTIONS (4)
  - Liver function test abnormal [Unknown]
  - Metabolic acidosis [Unknown]
  - Glomerular filtration rate decreased [Unknown]
  - Troponin increased [Unknown]
